FAERS Safety Report 17235090 (Version 1)
Quarter: 2020Q1

REPORT INFORMATION
  Report Type: Spontaneous
  Country: IE (occurrence: IE)
  Receive Date: 20200106
  Receipt Date: 20200106
  Transmission Date: 20200409
  Serious: Yes (Hospitalization)
  Sender: FDA-Public Use
  Company Number: IE-ROCHE-2509306

PATIENT
  Age: 54 Year
  Sex: Female
  Weight: 68.8 kg

DRUGS (3)
  1. ROACTEMRA [Suspect]
     Active Substance: TOCILIZUMAB
     Dosage: 535 MG PERIODICAL INFUSION, NOT WEEKLY OR DAILY
     Route: 042
     Dates: start: 20191202
  2. ROACTEMRA [Suspect]
     Active Substance: TOCILIZUMAB
     Indication: RHEUMATOID ARTHRITIS
     Dosage: 535 MG PERIODICAL INFUSION, NOT WEEKLY OR DAILY
     Route: 042
     Dates: start: 20191111
  3. VALSARTAN. [Concomitant]
     Active Substance: VALSARTAN
     Indication: HYPERTENSION
     Route: 065

REACTIONS (5)
  - Nausea [Recovered/Resolved]
  - Chills [Recovered/Resolved]
  - Paraesthesia [Recovered/Resolved]
  - Flushing [Recovered/Resolved]
  - Head discomfort [Recovered/Resolved]

NARRATIVE: CASE EVENT DATE: 20191202
